FAERS Safety Report 6204472-1 (Version None)
Quarter: 2009Q2

REPORT INFORMATION
  Report Type: 
  Country: None (occurrence: None)
  Receive Date: 20090527
  Receipt Date: 20090522
  Transmission Date: 20091009
  Serious: Yes (Other)
  Sender: FDA-Public Use
  Company Number: US-ASTRAZENECA-2009UW13052

PATIENT
  Age: 717 Month
  Sex: Male
  Weight: 108.9 kg

DRUGS (2)
  1. CRESTOR [Suspect]
     Indication: BLOOD CHOLESTEROL INCREASED
     Route: 048
     Dates: start: 20081201
  2. BENICAR [Concomitant]

REACTIONS (2)
  - HELICOBACTER INFECTION [None]
  - NAUSEA [None]
